FAERS Safety Report 5205406-9 (Version None)
Quarter: 2007Q1

REPORT INFORMATION
  Report Type: 
  Country: None (occurrence: None)
  Receive Date: 20070108
  Receipt Date: 20061228
  Transmission Date: 20070707
  Serious: Yes (Other)
  Sender: FDA-Public Use
  Company Number: 163-C5013-06030639

PATIENT
  Age: 64 Year
  Sex: Male
  Weight: 124 kg

DRUGS (2)
  1. CC-5013 (LENALIDOMIDE) (CAPSULES) [Suspect]
     Indication: MULTIPLE MYELOMA
     Dosage: 25 MG, DAYS 1-21, EVERY 28 DAYS, ORAL; SEE IMAGE
     Route: 048
     Dates: start: 20050127, end: 20051102
  2. DEXAMETHASONE TAB [Suspect]
     Indication: MULTIPLE MYELOMA
     Dosage: 40 MG, DAYS 1-4, 91-12, 17-20, Q28D, ORAL
     Route: 048
     Dates: start: 20050127, end: 20051029

REACTIONS (8)
  - AGITATION [None]
  - ASPARTATE AMINOTRANSFERASE INCREASED [None]
  - HYPERBILIRUBINAEMIA [None]
  - HYPOTHYROIDISM [None]
  - LYMPHOPENIA [None]
  - MONOCYTE COUNT DECREASED [None]
  - MOOD SWINGS [None]
  - PULMONARY EMBOLISM [None]
